FAERS Safety Report 20929871 (Version 2)
Quarter: 2023Q2

REPORT INFORMATION
  Report Type: Spontaneous
  Country: US (occurrence: US)
  Receive Date: 20220608
  Receipt Date: 20230526
  Transmission Date: 20230721
  Serious: No
  Sender: FDA-Public Use
  Company Number: US-PERRIGO-22US004646

PATIENT
  Age: 43 Year
  Sex: Male
  Weight: 81.633 kg

DRUGS (1)
  1. MINOXIDIL [Suspect]
     Active Substance: MINOXIDIL
     Indication: Alopecia
     Dosage: QUARTER OF CAPFUL, BID
     Route: 061
     Dates: start: 20211031, end: 20220131

REACTIONS (5)
  - Application site rash [Recovered/Resolved]
  - Application site inflammation [Recovered/Resolved]
  - Application site dryness [Recovered/Resolved]
  - Application site irritation [Recovered/Resolved]
  - Underdose [None]

NARRATIVE: CASE EVENT DATE: 20220115
